FAERS Safety Report 14321145 (Version 3)
Quarter: 2018Q1

REPORT INFORMATION
  Report Type: Spontaneous
  Country: US (occurrence: US)
  Receive Date: 20171223
  Receipt Date: 20180319
  Transmission Date: 20180509
  Serious: Yes (Hospitalization, Other)
  Sender: FDA-Public Use
  Company Number: US-AMGEN-USASP2017187353

PATIENT
  Age: 65 Year
  Sex: Female

DRUGS (1)
  1. PROLIA [Suspect]
     Active Substance: DENOSUMAB
     Indication: OSTEOPOROSIS POSTMENOPAUSAL
     Dosage: 60 MG, UNK
     Route: 058
     Dates: start: 20171208, end: 20171208

REACTIONS (15)
  - Diarrhoea [Unknown]
  - Feeling cold [Unknown]
  - Nausea [Unknown]
  - Mobility decreased [Unknown]
  - Memory impairment [Unknown]
  - Tremor [Unknown]
  - Vomiting [Unknown]
  - Back pain [Unknown]
  - Cardiac disorder [Unknown]
  - Heart rate increased [Unknown]
  - Feeling hot [Unknown]
  - Asthenia [Not Recovered/Not Resolved]
  - Pyrexia [Unknown]
  - Pain [Unknown]
  - Malaise [Unknown]

NARRATIVE: CASE EVENT DATE: 20171210
